FAERS Safety Report 5528158-1 (Version None)
Quarter: 2007Q4

REPORT INFORMATION
  Report Type: 
  Country: None (occurrence: None)
  Receive Date: 20071121
  Receipt Date: 20071107
  Transmission Date: 20080405
  Serious: Yes (Hospitalization, Other)
  Sender: FDA-Public Use
  Company Number: 2006P1000063

PATIENT
  Age: 48 Year
  Sex: Male
  Weight: 130 kg

DRUGS (6)
  1. RETEPLASE (RETEPLASE) [Suspect]
     Indication: ACUTE MYOCARDIAL INFARCTION
     Dosage: IU;X1;IVB ; IU;X1;IVB
     Dates: start: 20051024, end: 20051024
  2. RETEPLASE (RETEPLASE) [Suspect]
     Indication: ACUTE MYOCARDIAL INFARCTION
     Dosage: IU;X1;IVB ; IU;X1;IVB
     Dates: start: 20051024, end: 20051024
  3. RETEPLASE (RETEPLASE) [Suspect]
  4. ABCIXIMAB (ABCIXIMAB) [Suspect]
     Indication: ACUTE MYOCARDIAL INFARCTION
     Dosage: 2 ML;X1;IVB ; ML; QH;IV
     Route: 042
     Dates: start: 20051024, end: 20051024
  5. ABCIXIMAB (ABCIXIMAB) [Suspect]
     Indication: ACUTE MYOCARDIAL INFARCTION
     Dosage: 2 ML;X1;IVB ; ML; QH;IV
     Route: 042
     Dates: start: 20051024, end: 20051024
  6. ACE INHIBITOR NOS [Concomitant]

REACTIONS (9)
  - BLOOD CHOLESTEROL INCREASED [None]
  - BLOOD CREATINE PHOSPHOKINASE MB INCREASED [None]
  - BLOOD GLUCOSE INCREASED [None]
  - CORONARY ARTERY STENOSIS [None]
  - HIGH DENSITY LIPOPROTEIN DECREASED [None]
  - MYOCARDIAL ISCHAEMIA [None]
  - TROPONIN I INCREASED [None]
  - VASCULAR PSEUDOANEURYSM [None]
  - VESSEL PUNCTURE SITE HAEMATOMA [None]
